FAERS Safety Report 8569120-4 (Version None)
Quarter: 2012Q3

REPORT INFORMATION
  Report Type: 
  Country: None (occurrence: None)
  Receive Date: 20120803
  Receipt Date: 20120217
  Transmission Date: 20120928
  Serious: No
  Sender: FDA-Public Use
  Company Number: US-ABBOTT-12P-163-0905600-00

PATIENT
  Sex: Male
  Weight: 124.4 kg

DRUGS (13)
  1. NIASPAN [Suspect]
     Indication: PRODUCT USED FOR UNKNOWN INDICATION
     Dosage: 1 IN 1 D, AT BEDTIME
     Dates: start: 20060101, end: 20090101
  2. ASPIRIN [Concomitant]
     Indication: PRODUCT USED FOR UNKNOWN INDICATION
     Dosage: LOW DOSE IN THE MORNING
  3. DIOVAN [Concomitant]
     Indication: PRODUCT USED FOR UNKNOWN INDICATION
  4. ENBREL [Concomitant]
     Indication: PRODUCT USED FOR UNKNOWN INDICATION
  5. FOLBEE [Concomitant]
     Indication: PRODUCT USED FOR UNKNOWN INDICATION
  6. TAMSULOSIN HCL [Concomitant]
     Indication: PRODUCT USED FOR UNKNOWN INDICATION
  7. ENLERENONE [Concomitant]
     Indication: PRODUCT USED FOR UNKNOWN INDICATION
  8. FISH OIL [Concomitant]
     Indication: PRODUCT USED FOR UNKNOWN INDICATION
  9. NIASPAN [Suspect]
     Dates: start: 20090101
  10. PRAVEDIOL [Concomitant]
     Indication: PRODUCT USED FOR UNKNOWN INDICATION
  11. PLAVIX [Concomitant]
     Indication: PRODUCT USED FOR UNKNOWN INDICATION
  12. VYTORIN [Concomitant]
     Indication: PRODUCT USED FOR UNKNOWN INDICATION
  13. METFORMIN HYDROCHLORIDE [Concomitant]
     Indication: PRODUCT USED FOR UNKNOWN INDICATION

REACTIONS (4)
  - FLUSHING [None]
  - FEELING HOT [None]
  - SUNBURN [None]
  - PILOERECTION [None]
